FAERS Safety Report 9410515 (Version 2)
Quarter: 2013Q3

REPORT INFORMATION
  Report Type: Spontaneous
  Country: ES (occurrence: ES)
  Receive Date: 20130719
  Receipt Date: 20130731
  Transmission Date: 20140515
  Serious: Yes (Other)
  Sender: FDA-Public Use
  Company Number: ES-ACTAVIS-2013-12449

PATIENT
  Age: 71 Year
  Sex: Female

DRUGS (5)
  1. CLOPIDOGREL (UNKNOWN) [Suspect]
     Indication: TRANSIENT ISCHAEMIC ATTACK
     Dosage: 75 MG, DAILY
     Route: 065
  2. EXEMESTANE (UNKNOWN) [Interacting]
     Indication: ADJUVANT THERAPY
     Dosage: 25 MG, DAILY
     Route: 065
     Dates: start: 20110616
  3. HYDROCHLOROTHIAZIDE [Concomitant]
     Indication: HYPERTENSION
     Dosage: UNKNOWN
     Route: 065
  4. LANSOPRAZOLE [Concomitant]
     Indication: HIATUS HERNIA
     Dosage: UNKNOWN
     Route: 065
  5. CALCIUM + VITAMIN D [Concomitant]
     Indication: OSTEOPOROSIS
     Dosage: UNKNOWN
     Route: 065

REACTIONS (3)
  - Haematoma [Recovered/Resolved]
  - Osteopenia [Unknown]
  - Drug interaction [Recovered/Resolved]
